FAERS Safety Report 14005376 (Version 1)
Quarter: 2017Q3

REPORT INFORMATION
  Report Type: Spontaneous
  Country: SG (occurrence: SG)
  Receive Date: 20170922
  Receipt Date: 20170922
  Transmission Date: 20171128
  Serious: Yes (Other)
  Sender: FDA-Public Use
  Company Number: SG-BAYER-2017-139273

PATIENT
  Age: 77 Year
  Sex: Male

DRUGS (3)
  1. CLEXANE [Interacting]
     Active Substance: ENOXAPARIN SODIUM
     Indication: ATRIAL FIBRILLATION
  2. ACETYLSALICYLIC ACID (} 100 MG) [Interacting]
     Active Substance: ASPIRIN
     Indication: EJECTION FRACTION DECREASED
  3. ACETYLSALICYLIC ACID (} 100 MG) [Suspect]
     Active Substance: ASPIRIN
     Indication: ACUTE MYOCARDIAL INFARCTION

REACTIONS (9)
  - Paraplegia [None]
  - Contraindicated product administered [None]
  - Extensor plantar response [None]
  - Extradural haematoma [None]
  - Spinal cord compression [None]
  - Spinal cord haematoma [None]
  - Labelled drug-drug interaction medication error [None]
  - Hypotonia [None]
  - Back pain [Unknown]
